FAERS Safety Report 6544566-4 (Version None)
Quarter: 2010Q1

REPORT INFORMATION
  Report Type: 
  Country: None (occurrence: None)
  Receive Date: 20100120
  Receipt Date: 20100120
  Transmission Date: 20100710
  Serious: Yes (Life-Threatening, Hospitalization, Disabling, Congenital Anomaly, Other)
  Sender: FDA-Public Use
  Company Number: None

PATIENT
  Age: 72 Year
  Sex: Female
  Weight: 49.8957 kg

DRUGS (2)
  1. CELEBREX [Suspect]
     Indication: BACK PAIN
     Dosage: 2 CELEBREX A DAY BID PO ONE MONTH PLUS
     Route: 048
     Dates: start: 20090426, end: 20090601
  2. CELEBREX [Suspect]
     Indication: MYALGIA
     Dosage: 2 CELEBREX A DAY BID PO ONE MONTH PLUS
     Route: 048
     Dates: start: 20090426, end: 20090601

REACTIONS (5)
  - CATARACT [None]
  - CONTUSION [None]
  - IMMUNE SYSTEM DISORDER [None]
  - INFECTION [None]
  - MALAISE [None]
